FAERS Safety Report 17902617 (Version 1)
Quarter: 2020Q2

REPORT INFORMATION
  Report Type: Spontaneous
  Country: US (occurrence: US)
  Receive Date: 20200616
  Receipt Date: 20200616
  Transmission Date: 20200714
  Serious: Yes (Death, Other)
  Sender: FDA-Public Use
  Company Number: US-TAKEDA-2020TUS026666

PATIENT

DRUGS (1)
  1. PREVACID [Suspect]
     Active Substance: LANSOPRAZOLE
     Indication: PRODUCT USED FOR UNKNOWN INDICATION
     Dosage: UNK
     Route: 048
     Dates: start: 2006, end: 2017

REACTIONS (5)
  - Rebound acid hypersecretion [Fatal]
  - Chronic kidney disease [Fatal]
  - Renal failure [Fatal]
  - End stage renal disease [Fatal]
  - Acute kidney injury [Fatal]
